FAERS Safety Report 22180656 (Version 1)
Quarter: 2023Q2

REPORT INFORMATION
  Report Type: Report from Study
  Country: DE (occurrence: DE)
  Receive Date: 20230406
  Receipt Date: 20230406
  Transmission Date: 20230721
  Serious: Yes (Life-Threatening)
  Sender: FDA-Public Use
  Company Number: DE-002147023-NVSC2023DE078043

PATIENT

DRUGS (2)
  1. TOPOTECAN HYDROCHLORIDE [Suspect]
     Active Substance: TOPOTECAN HYDROCHLORIDE
     Indication: Ovarian cancer recurrent
     Dosage: 4 MG/M2 ADMINISTERED OVER 30 MIN ON DAYS 1, 8 AND 15, REPEATED EVERY 28 DAYS, FOR UP TO MAXIMUM OF 6
     Route: 042
  2. PAZOPANIB [Suspect]
     Active Substance: PAZOPANIB
     Indication: Ovarian cancer recurrent
     Dosage: 400 MG (DOSE LEVEL 1) AND IN ABSENCE OF DLT ESCALATED TO DOSE OF 600 MG (LEVEL 2) AND 800 MG (LEVEL
     Route: 048

REACTIONS (2)
  - Pulmonary embolism [Unknown]
  - Neutropenia [Unknown]
